FAERS Safety Report 14473875 (Version 1)
Quarter: 2018Q1

REPORT INFORMATION
  Report Type: Spontaneous
  Country: US (occurrence: US)
  Receive Date: 20180201
  Receipt Date: 20180201
  Transmission Date: 20180509
  Serious: Yes (Other)
  Sender: FDA-Public Use
  Company Number: US-FRESENIUS KABI-FK201801042

PATIENT
  Age: 72 Year
  Sex: Male
  Weight: 95.45 kg

DRUGS (4)
  1. STERILE WATER [Concomitant]
     Active Substance: WATER
     Indication: MEDICATION DILUTION
     Dates: start: 20180117, end: 20180117
  2. STERILE VANCOMYCIN HYDROCHLORIDE, USP [Suspect]
     Active Substance: VANCOMYCIN HYDROCHLORIDE
     Indication: ANTIBIOTIC PROPHYLAXIS
     Dates: start: 20180117, end: 20180117
  3. STERILE VANCOMYCIN HYDROCHLORIDE, USP [Suspect]
     Active Substance: VANCOMYCIN HYDROCHLORIDE
     Indication: INFECTION PROPHYLAXIS
  4. STERILE WATER [Concomitant]
     Active Substance: WATER
     Indication: PRODUCT USED FOR UNKNOWN INDICATION
     Route: 065
     Dates: start: 20180117, end: 20180117

REACTIONS (4)
  - Injection site plaque [Recovering/Resolving]
  - Intentional product use issue [Unknown]
  - Conjunctival oedema [Unknown]
  - Product preparation error [Unknown]

NARRATIVE: CASE EVENT DATE: 20180117
